FAERS Safety Report 11669229 (Version 1)
Quarter: 2015Q4

REPORT INFORMATION
  Report Type: Spontaneous
  Country: US (occurrence: US)
  Receive Date: 20151027
  Receipt Date: 20151027
  Transmission Date: 20160304
  Serious: Yes (Other)
  Sender: FDA-Public Use
  Company Number: US-DSJP-DSU-2015-133229

PATIENT

DRUGS (1)
  1. BENICAR [Suspect]
     Active Substance: OLMESARTAN MEDOXOMIL
     Indication: HYPERTENSION
     Dosage: 40 MG, QD
     Route: 048
     Dates: start: 2012

REACTIONS (4)
  - Lung neoplasm malignant [Unknown]
  - Atrial fibrillation [Unknown]
  - Blood pressure fluctuation [Unknown]
  - Stress [Unknown]

NARRATIVE: CASE EVENT DATE: 201311
